FAERS Safety Report 9701932 (Version 2)
Quarter: 2013Q4

REPORT INFORMATION
  Report Type: Spontaneous
  Country: GB (occurrence: None)
  Receive Date: 20131120
  Receipt Date: 20131129
  Transmission Date: 20140711
  Serious: Yes (Death)
  Sender: FDA-Public Use
  Company Number: NGX_02098_2013

PATIENT
  Age: 58 Year
  Sex: Female

DRUGS (1)
  1. QUTENZA [Suspect]
     Indication: NEURALGIA
     Dosage: (1 DF, [STAT] TOPICAL)
     Route: 061
     Dates: start: 20130514

REACTIONS (3)
  - Death [None]
  - Cerebral haemorrhage [None]
  - Intracranial aneurysm [None]
